FAERS Safety Report 7415765-4 (Version None)
Quarter: 2011Q2

REPORT INFORMATION
  Report Type: 
  Country: None (occurrence: None)
  Receive Date: 20110406
  Receipt Date: 20110324
  Transmission Date: 20111010
  Serious: Yes (Hospitalization)
  Sender: FDA-Public Use
  Company Number: 2011MA003162

PATIENT
  Age: 68 Year
  Sex: Female

DRUGS (8)
  1. CITALOPRAM HYDROBROMIDE [Suspect]
     Indication: PRODUCT USED FOR UNKNOWN INDICATION
     Dates: start: 20100219, end: 20101119
  2. APIXABAN [Suspect]
     Dosage: 5 MG;BID;PO
     Route: 048
  3. CLOPIDOGREL [Concomitant]
  4. TRANDOLAPRIL [Concomitant]
  5. ACETYLSALICYLIC ACID SRT [Concomitant]
  6. SIMVASTATIN [Concomitant]
  7. ATORVASTATIN (ATORVASTATIN) [Suspect]
     Indication: PRODUCT USED FOR UNKNOWN INDICATION
     Dates: start: 20100426
  8. METOPROLOL [Concomitant]

REACTIONS (4)
  - BLOOD ALKALINE PHOSPHATASE INCREASED [None]
  - ABDOMINAL PAIN UPPER [None]
  - ASPARTATE AMINOTRANSFERASE INCREASED [None]
  - BLOOD BILIRUBIN INCREASED [None]
